FAERS Safety Report 15131188 (Version 1)
Quarter: 2018Q3

REPORT INFORMATION
  Report Type: Spontaneous
  Country: AR (occurrence: AR)
  Receive Date: 20180711
  Receipt Date: 20180711
  Transmission Date: 20181010
  Serious: Yes (Hospitalization, Other)
  Sender: FDA-Public Use
  Company Number: AR-ASTRAZENECA-2018SE79872

PATIENT
  Sex: Female

DRUGS (2)
  1. OLAPARIB. [Suspect]
     Active Substance: OLAPARIB
     Route: 048
     Dates: start: 201711, end: 201801
  2. OLAPARIB. [Suspect]
     Active Substance: OLAPARIB
     Route: 048
     Dates: start: 201804

REACTIONS (7)
  - Transaminases increased [Unknown]
  - Ascites [Recovered/Resolved]
  - Blood alkaline phosphatase increased [Unknown]
  - Generalised oedema [Recovered/Resolved]
  - Hypoproteinaemia [Unknown]
  - Hypoalbuminaemia [Unknown]
  - Portal hypertension [Unknown]

NARRATIVE: CASE EVENT DATE: 201801
